FAERS Safety Report 4636625-8 (Version None)
Quarter: 2005Q2

REPORT INFORMATION
  Report Type: 
  Country: None (occurrence: None)
  Receive Date: 20050328
  Receipt Date: 20041209
  Transmission Date: 20051028
  Serious: No
  Sender: FDA-Public Use
  Company Number: USA041285786

PATIENT
  Age: 9 Year
  Sex: Male

DRUGS (4)
  1. STRATTERA [Suspect]
     Dosage: 25 MG DAY
     Dates: start: 20040901
  2. ZYRTEC [Concomitant]
  3. FLUTICASONE PROPIONATE W/ SALMETEROL [Concomitant]
  4. NASONEX [Concomitant]

REACTIONS (2)
  - DYSURIA [None]
  - HEADACHE [None]
